FAERS Safety Report 12982500 (Version 1)
Quarter: 2016Q4

REPORT INFORMATION
  Report Type: Spontaneous
  Country: US (occurrence: US)
  Receive Date: 20161128
  Receipt Date: 20161128
  Transmission Date: 20170207
  Serious: Yes (Life-Threatening, Hospitalization, Disabling, Other)
  Sender: FDA-Public Use
  Company Number: None

PATIENT
  Age: 20 Year
  Sex: Female
  Weight: 97.2 kg

DRUGS (1)
  1. NUVARING [Suspect]
     Active Substance: ETHINYL ESTRADIOL\ETONOGESTREL
     Indication: CONTRACEPTION
     Dosage: QUANTITY:1 ONE VAGINAL RING;OTHER FREQUENCY:IN EVERY 4 WEEKS;?
     Route: 067
     Dates: start: 20161013, end: 20161125

REACTIONS (2)
  - Fatigue [None]
  - Pulmonary embolism [None]

NARRATIVE: CASE EVENT DATE: 20161124
